FAERS Safety Report 4340933-8 (Version None)
Quarter: 2004Q2

REPORT INFORMATION
  Report Type: 
  Country: None (occurrence: None)
  Receive Date: 20040413
  Receipt Date: 20040401
  Transmission Date: 20050107
  Serious: Yes (Death)
  Sender: FDA-Public Use
  Company Number: 163-20785-04010460

PATIENT
  Age: 10 Year
  Sex: Female

DRUGS (2)
  1. THALOMID [Suspect]
     Indication: GLIOBLASTOMA MULTIFORME
     Dosage: 300 MG, UNKNOWN, ORAL
     Route: 048
     Dates: start: 20031120, end: 20030101
  2. CYCLOPHOSPHAMIDE [Concomitant]

REACTIONS (2)
  - MALIGNANT NEOPLASM PROGRESSION [None]
  - NEUTROPENIA [None]
